FAERS Safety Report 24097673 (Version 1)
Quarter: 2024Q3

REPORT INFORMATION
  Report Type: Spontaneous
  Country: US (occurrence: US)
  Receive Date: 20240716
  Receipt Date: 20240716
  Transmission Date: 20241017
  Serious: No
  Sender: PERRIGO
  Company Number: US-PERRIGO-23US013641

PATIENT

DRUGS (2)
  1. IBUPROFEN\PHENYLEPHRINE HYDROCHLORIDE [Suspect]
     Active Substance: IBUPROFEN\PHENYLEPHRINE HYDROCHLORIDE
     Indication: Sinusitis
     Dosage: UNKNOWN, UNKNOWN
     Route: 048
  2. IBUPROFEN\PHENYLEPHRINE HYDROCHLORIDE [Suspect]
     Active Substance: IBUPROFEN\PHENYLEPHRINE HYDROCHLORIDE
     Indication: Pain

REACTIONS (2)
  - Off label use [Unknown]
  - Therapeutic response unexpected [Unknown]
